FAERS Safety Report 9664820 (Version 2)
Quarter: 2013Q4

REPORT INFORMATION
  Report Type: Report from Study
  Country: JP (occurrence: JP)
  Receive Date: 20131101
  Receipt Date: 20131129
  Transmission Date: 20140711
  Serious: Yes (Death, Other)
  Sender: FDA-Public Use
  Company Number: JP-TAKEDA-2013TJP002348

PATIENT
  Age: 73 Year
  Sex: Male
  Weight: 55 kg

DRUGS (4)
  1. LANSOPRAZOLE [Suspect]
     Indication: PROPHYLAXIS AGAINST GASTROINTESTINAL ULCER
     Dosage: 15 MG, QD
     Route: 048
     Dates: start: 20120919, end: 20120927
  2. BAYASPIRIN [Concomitant]
     Indication: THROMBOSIS PROPHYLAXIS
     Dosage: 200 MG, 1DAYS
     Route: 048
     Dates: start: 20120919
  3. CRESTOR [Concomitant]
     Dosage: 5 MG, 1 DAYS
     Route: 048
     Dates: start: 20120921, end: 20121205
  4. PRAZAXA [Concomitant]
     Indication: CEREBRAL INFARCTION
     Dosage: 220 MG, 1DAYS
     Route: 048
     Dates: start: 20120927

REACTIONS (1)
  - Lung neoplasm malignant [Fatal]
